FAERS Safety Report 8540186-0 (Version None)
Quarter: 2012Q3

REPORT INFORMATION
  Report Type: 
  Country: None (occurrence: None)
  Receive Date: 20120726
  Receipt Date: 20120719
  Transmission Date: 20120928
  Serious: Yes (Hospitalization, Other)
  Sender: FDA-Public Use
  Company Number: FR-PFIZER INC-2012040574

PATIENT
  Age: 64 Year
  Sex: Female
  Weight: 47 kg

DRUGS (6)
  1. BONIVA [Concomitant]
     Indication: OSTEOPOROSIS
     Route: 048
  2. VARENICLINE TARTRATE [Suspect]
     Dosage: 0.5 MG, 2X/DAY
     Dates: start: 20111212, end: 20120125
  3. PRAZEPAM [Concomitant]
     Indication: ANXIETY
     Dosage: 5 MG, 1X/DAY
     Route: 048
  4. PROGESTERONE [Concomitant]
     Indication: MENOPAUSE
     Route: 048
  5. VARENICLINE TARTRATE [Suspect]
     Indication: SMOKING CESSATION THERAPY
     Dosage: 2 MG, 1X/DAY
     Dates: start: 20111108, end: 20111211
  6. OESTRODOSE [Concomitant]
     Indication: MENOPAUSE
     Route: 062

REACTIONS (6)
  - DEPRESSION [None]
  - TOXICITY TO VARIOUS AGENTS [None]
  - INSOMNIA [None]
  - NAUSEA [None]
  - GASTROINTESTINAL DISORDER [None]
  - SUICIDE ATTEMPT [None]
